FAERS Safety Report 9491032 (Version 1)
Quarter: 2013Q3

REPORT INFORMATION
  Report Type: Spontaneous
  Country: LT (occurrence: LT)
  Receive Date: 20130830
  Receipt Date: 20130830
  Transmission Date: 20140515
  Serious: Yes (Death, Hospitalization)
  Sender: FDA-Public Use
  Company Number: LT-SANOFI-AVENTIS-2013SA085969

PATIENT
  Age: 50 Year
  Sex: Male

DRUGS (1)
  1. TAXOTERE [Suspect]
     Indication: GASTRIC CANCER
     Dosage: ROUTE- INFUSION

REACTIONS (3)
  - Neutropenia [Fatal]
  - Pyrexia [Unknown]
  - Diarrhoea [Unknown]
